FAERS Safety Report 8975875 (Version 1)
Quarter: 2012Q4

REPORT INFORMATION
  Report Type: 
  Country: US (occurrence: US)
  Receive Date: 20121219
  Receipt Date: 20121219
  Transmission Date: 20130627
  Serious: Yes (Other)
  Sender: FDA-Public Use
  Company Number: US-GLAXOSMITHKLINE-A1005098A

PATIENT
  Age: 36 Year
  Sex: Female

DRUGS (24)
  1. BENLYSTA [Suspect]
     Indication: SYSTEMIC LUPUS ERYTHEMATOSUS
     Route: 042
     Dates: start: 201006, end: 201210
  2. ZOFRAN [Suspect]
     Indication: PROPHYLAXIS OF NAUSEA AND VOMITING
     Route: 065
  3. IMURAN [Suspect]
     Indication: PRODUCT USED FOR UNKNOWN INDICATION
     Route: 065
     Dates: end: 2012
  4. PLAQUENIL [Suspect]
     Indication: PRODUCT USED FOR UNKNOWN INDICATION
     Route: 065
     Dates: end: 2012
  5. IVIG [Concomitant]
  6. MORPHINE SULFATE [Concomitant]
  7. DIOVAN HCT [Concomitant]
  8. HYOSCYAMINE SULFATE [Concomitant]
  9. NEURONTIN [Concomitant]
  10. MORPHINE [Concomitant]
  11. VENTOLIN [Concomitant]
  12. ALBUTEROL SULFATE [Concomitant]
  13. ADVAIR [Concomitant]
  14. ASPIRIN [Concomitant]
  15. NOVOLOG [Concomitant]
  16. MULTIVITAMIN [Concomitant]
  17. BENADRYL [Concomitant]
  18. TUMS [Concomitant]
  19. IBUPROFEN [Concomitant]
  20. VITAMIN C [Concomitant]
  21. CALCIUM [Concomitant]
  22. VITAMIN D [Concomitant]
  23. CRANBERRY EXTRACT [Concomitant]
  24. MEDROL [Concomitant]

REACTIONS (21)
  - Pneumonia [Unknown]
  - Systemic lupus erythematosus [Unknown]
  - Gastric haemorrhage [Unknown]
  - Crohn^s disease [Unknown]
  - Influenza [Unknown]
  - Muscle spasms [Unknown]
  - Muscle spasms [Unknown]
  - Headache [Recovered/Resolved]
  - Vomiting [Unknown]
  - Dehydration [Not Recovered/Not Resolved]
  - Fatigue [Not Recovered/Not Resolved]
  - Nausea [Not Recovered/Not Resolved]
  - Bronchitis [Unknown]
  - Pleurisy [Unknown]
  - Bone pain [Unknown]
  - Weight decreased [Unknown]
  - Weight increased [Unknown]
  - White blood cell count decreased [Unknown]
  - Anaemia [Unknown]
  - Fatigue [Unknown]
  - Drug ineffective [Unknown]
